FAERS Safety Report 25609845 (Version 2)
Quarter: 2025Q4

REPORT INFORMATION
  Report Type: Report from Study
  Country: US (occurrence: US)
  Receive Date: 20250728
  Receipt Date: 20251024
  Transmission Date: 20260117
  Serious: Yes (Other)
  Sender: ALEXION PHARMACEUTICALS
  Company Number: US-AstraZeneca-CH-00913096A

PATIENT
  Sex: Female
  Weight: 104.32 kg

DRUGS (2)
  1. TEZEPELUMAB [Suspect]
     Active Substance: TEZEPELUMAB
     Indication: Asthma
     Dosage: 210 MILLIGRAM, Q4W
  2. TEZEPELUMAB [Suspect]
     Active Substance: TEZEPELUMAB

REACTIONS (6)
  - Dyspnoea exertional [Unknown]
  - Wheezing [Unknown]
  - Bell^s palsy [Unknown]
  - Neoplasm [Unknown]
  - Overweight [Unknown]
  - Chest discomfort [Unknown]
